FAERS Safety Report 20408785 (Version 2)
Quarter: 2022Q1

REPORT INFORMATION
  Report Type: Report from Study
  Country: IN (occurrence: IN)
  Receive Date: 20220201
  Receipt Date: 20220310
  Transmission Date: 20220424
  Serious: Yes (Life-Threatening, Hospitalization, Other)
  Sender: FDA-Public Use
  Company Number: IN-AMGEN-INDSL2022014563

PATIENT
  Age: 74 Year
  Sex: Male

DRUGS (1)
  1. KYPROLIS [Suspect]
     Active Substance: CARFILZOMIB
     Indication: Plasma cell myeloma
     Dosage: UNK, 2 TIMES/WK (2 VIALS/WEEK)
     Route: 042
     Dates: start: 20211125

REACTIONS (3)
  - Heart rate irregular [Unknown]
  - Pulmonary oedema [Unknown]
  - Asthenia [Unknown]
